FAERS Safety Report 24662394 (Version 1)
Quarter: 2024Q4

REPORT INFORMATION
  Report Type: Spontaneous
  Country: CA (occurrence: CA)
  Receive Date: 20241125
  Receipt Date: 20241125
  Transmission Date: 20250115
  Serious: Yes (Death)
  Sender: REGENERON
  Company Number: CA-BAYER-2024A166533

PATIENT
  Sex: Female

DRUGS (1)
  1. EYLEA [Suspect]
     Active Substance: AFLIBERCEPT
     Indication: Neovascular age-related macular degeneration
     Dosage: UNK, SOLUTION FOR INJECTION IN PRE-FILLED SYRINGE, 40MG/ML
     Dates: start: 20230404

REACTIONS (1)
  - Death [Fatal]
